FAERS Safety Report 6585578-4 (Version None)
Quarter: 2010Q1

REPORT INFORMATION
  Report Type: 
  Country: None (occurrence: None)
  Receive Date: 20100217
  Receipt Date: 20100209
  Transmission Date: 20100710
  Serious: Yes (Hospitalization)
  Sender: FDA-Public Use
  Company Number: GXKR2010GB01660

PATIENT
  Age: 78 Year
  Sex: Female

DRUGS (9)
  1. OMEPRAZOLE [Suspect]
     Indication: GASTROOESOPHAGEAL REFLUX DISEASE
     Dosage: UNK
     Route: 048
     Dates: start: 19990101
  2. OMEPRAZOLE [Suspect]
     Indication: BARRETT'S OESOPHAGUS
  3. PANTOPRAZOLE [Suspect]
     Indication: GASTROOESOPHAGEAL REFLUX DISEASE
     Route: 065
  4. PANTOPRAZOLE [Suspect]
     Indication: BARRETT'S OESOPHAGUS
  5. ESOMEPRAZOLE MAGNESIUM [Suspect]
     Indication: GASTROOESOPHAGEAL REFLUX DISEASE
     Route: 065
  6. ESOMEPRAZOLE MAGNESIUM [Suspect]
     Indication: BARRETT'S OESOPHAGUS
  7. ALFACALCIDOL [Concomitant]
     Dosage: 250 NG, QD
  8. CALCICHEW D3 [Concomitant]
     Dosage: UNK
     Route: 048
  9. FRUSEMIDE [Concomitant]
     Dosage: 20 MG, QD

REACTIONS (8)
  - CIRCULATORY COLLAPSE [None]
  - GAIT DISTURBANCE [None]
  - HYPOCALCAEMIA [None]
  - HYPOMAGNESAEMIA [None]
  - LETHARGY [None]
  - MUSCLE SPASMS [None]
  - PARAESTHESIA [None]
  - TETANY [None]
